FAERS Safety Report 16545254 (Version 2)
Quarter: 2019Q3

REPORT INFORMATION
  Report Type: Report from Study
  Country: US (occurrence: US)
  Receive Date: 20190709
  Receipt Date: 20190722
  Transmission Date: 20191004
  Serious: Yes (Hospitalization)
  Sender: FDA-Public Use
  Company Number: US-PFIZER INC-2019285819

PATIENT
  Age: 18 Year
  Sex: Male
  Weight: 101.1 kg

DRUGS (10)
  1. VINCRISTINE SULFATE. [Suspect]
     Active Substance: VINCRISTINE SULFATE
     Indication: B PRECURSOR TYPE ACUTE LEUKAEMIA
     Dosage: 2 MG, PUCH ONE DOSE
     Route: 042
     Dates: start: 20190430, end: 20190430
  2. METHOTREXATE SODIUM. [Suspect]
     Active Substance: METHOTREXATE SODIUM
     Indication: B PRECURSOR TYPE ACUTE LEUKAEMIA
     Dosage: 10500 MG, OVER 24 HRS
     Route: 042
     Dates: start: 20190430, end: 20190501
  3. LEUCOVORIN. [Suspect]
     Active Substance: LEUCOVORIN
     Indication: B PRECURSOR TYPE ACUTE LEUKAEMIA
     Dosage: 896 MG, Q6H
     Route: 042
     Dates: start: 20190502, end: 20190509
  4. LEUCOVORIN. [Suspect]
     Active Substance: LEUCOVORIN
     Dosage: 750 MG, Q6H
     Route: 042
     Dates: start: 20190606
  5. MERCAPTOPURINE. [Suspect]
     Active Substance: MERCAPTOPURINE
     Dosage: 375 MG, UNK
     Route: 048
     Dates: start: 20190604, end: 20190610
  6. MERCAPTOPURINE. [Suspect]
     Active Substance: MERCAPTOPURINE
     Indication: B PRECURSOR TYPE ACUTE LEUKAEMIA
     Dosage: 450 MG (75 MG X 1 (S), 50 X 6 (M.S))
     Route: 048
     Dates: start: 20190430, end: 20190513
  7. INCB018424 [Suspect]
     Active Substance: RUXOLITINIB
     Indication: B PRECURSOR TYPE ACUTE LEUKAEMIA
     Dosage: 105 MG, BID
     Route: 048
     Dates: start: 20190430
  8. VINCRISTINE SULFATE. [Suspect]
     Active Substance: VINCRISTINE SULFATE
     Dosage: 2 MG, SINGLE
     Route: 042
     Dates: start: 20190604
  9. METHOTREXATE SODIUM. [Suspect]
     Active Substance: METHOTREXATE SODIUM
     Indication: ACUTE LYMPHOCYTIC LEUKAEMIA
     Dosage: 15 MG, SINGLE
     Route: 037
     Dates: start: 20190430, end: 20190430
  10. METHOTREXATE SODIUM. [Suspect]
     Active Substance: METHOTREXATE SODIUM
     Dosage: 10500 MG, EVERY 24 HRS
     Route: 042
     Dates: start: 20190604

REACTIONS (1)
  - Febrile neutropenia [Recovered/Resolved]

NARRATIVE: CASE EVENT DATE: 20190610
